FAERS Safety Report 6307072-8 (Version None)
Quarter: 2009Q3

REPORT INFORMATION
  Report Type: 
  Country: None (occurrence: None)
  Receive Date: 20090812
  Receipt Date: 20090804
  Transmission Date: 20100115
  Serious: Yes (Hospitalization)
  Sender: FDA-Public Use
  Company Number: PHHO2009US09805

PATIENT
  Sex: Male
  Weight: 71.4 kg

DRUGS (5)
  1. BLINDED ACZ885 ACZ+SOLINF+COPD [Suspect]
     Indication: CHRONIC OBSTRUCTIVE PULMONARY DISEASE
     Dosage: DOUBLE BLIND
     Route: 042
     Dates: start: 20080819
  2. BLINDED NO TREATMENT RECEIVED NOMED [Suspect]
     Indication: CHRONIC OBSTRUCTIVE PULMONARY DISEASE
     Dosage: DOUBLE BLIND
     Route: 042
     Dates: start: 20080819
  3. BLINDED PLACEBO COMP-PLA+ [Suspect]
     Indication: CHRONIC OBSTRUCTIVE PULMONARY DISEASE
     Dosage: DOUBLE BLIND
     Route: 042
     Dates: start: 20080819
  4. SYMBICORT [Concomitant]
     Indication: CHRONIC OBSTRUCTIVE PULMONARY DISEASE
     Dosage: UNK
  5. SPIRIVA [Concomitant]
     Dosage: UNK

REACTIONS (2)
  - CELLULITIS [None]
  - EXCORIATION [None]
